FAERS Safety Report 4509750-X (Version None)
Quarter: 2004Q4

REPORT INFORMATION
  Report Type: 
  Country: None (occurrence: None)
  Receive Date: 20041124
  Receipt Date: 20031009
  Transmission Date: 20050328
  Serious: No
  Sender: FDA-Public Use
  Company Number: US-BRISTOL-MYERS SQUIBB COMPANY-12412474

PATIENT
  Age: 73 Year
  Sex: Female
  Weight: 56 kg

DRUGS (4)
  1. AVALIDE [Suspect]
     Indication: HYPERTENSION
     Route: 048
     Dates: start: 20030401
  2. AMLODIPINE BESYLATE [Concomitant]
     Indication: HYPERTENSION
     Route: 048
  3. RALOXIFENE HCL [Concomitant]
     Indication: OSTEOPOROSIS
     Route: 048
  4. ZOLPIDEM TARTRATE [Concomitant]
     Indication: INSOMNIA
     Route: 048

REACTIONS (1)
  - LICHEN PLANUS [None]
